FAERS Safety Report 9324380 (Version 2)
Quarter: 2013Q4

REPORT INFORMATION
  Report Type: Spontaneous
  Country: IT (occurrence: IT)
  Receive Date: 20130603
  Receipt Date: 20131108
  Transmission Date: 20140711
  Serious: Yes (Hospitalization)
  Sender: FDA-Public Use
  Company Number: IT-TEVA-409493USA

PATIENT
  Age: 74 Year
  Sex: Male

DRUGS (1)
  1. LEVACT [Suspect]
     Indication: MANTLE CELL LYMPHOMA RECURRENT
     Route: 042
     Dates: start: 20130312, end: 20130313

REACTIONS (3)
  - Respiratory failure [Recovered/Resolved]
  - Sepsis [Recovered/Resolved]
  - Bronchopneumonia [Recovered/Resolved]
